FAERS Safety Report 7634027-3 (Version None)
Quarter: 2011Q3

REPORT INFORMATION
  Report Type: 
  Country: None (occurrence: None)
  Receive Date: 20110725
  Receipt Date: 20110715
  Transmission Date: 20111222
  Serious: Yes (Other)
  Sender: FDA-Public Use
  Company Number: US-GENZYME-CLOF-1001700

PATIENT

DRUGS (13)
  1. CAMPATH [Suspect]
     Indication: HAEMATOLOGICAL MALIGNANCY
  2. MELPHALAN HYDROCHLORIDE [Suspect]
     Indication: BONE MARROW CONDITIONING REGIMEN
     Dosage: UNK ON DAY -2
     Route: 042
  3. TACROLIMUS [Suspect]
     Indication: HAEMATOLOGICAL MALIGNANCY
     Dosage: UNK
     Route: 048
  4. TRIMETHOPRIM + SULFAMETHOXAZOLE [Concomitant]
     Indication: INFECTION PROPHYLAXIS
     Dosage: : GIVEN FROM ENGRAFTMENT UNTIL 1 YEAR AFTER TRANSPLANT
  5. MELPHALAN HYDROCHLORIDE [Suspect]
     Indication: HAEMATOLOGICAL MALIGNANCY
  6. ACYCLOVIR [Concomitant]
     Indication: INFECTION PROPHYLAXIS
  7. FILGRASTIM [Concomitant]
     Indication: SUPPORTIVE CARE
     Dosage: 5 MCG/KG, QD START ON DAY 1
     Route: 058
  8. BLOOD AND RELATED PRODUCTS [Concomitant]
     Indication: ANAEMIA PROPHYLAXIS
  9. CAMPATH [Suspect]
     Indication: BONE MARROW CONDITIONING REGIMEN
     Dosage: 20 MG, QDX5 ON DAYS -7 TO -3
     Route: 042
  10. CLOLAR [Suspect]
     Indication: BONE MARROW CONDITIONING REGIMEN
     Dosage: UNK QDX5 ON DAYS -7 TO -3
     Route: 042
  11. CLOLAR [Suspect]
     Indication: HAEMATOLOGICAL MALIGNANCY
  12. TACROLIMUS [Suspect]
     Indication: BONE MARROW CONDITIONING REGIMEN
     Dosage: UNK STARTED ON DAY -2
     Route: 042
  13. TACROLIMUS [Suspect]
     Indication: PROPHYLAXIS AGAINST GRAFT VERSUS HOST DISEASE

REACTIONS (1)
  - ENCEPHALOPATHY [None]
